FAERS Safety Report 8014111-5 (Version None)
Quarter: 2011Q4

REPORT INFORMATION
  Report Type: 
  Country: None (occurrence: None)
  Receive Date: 20111229
  Receipt Date: 20111220
  Transmission Date: 20120403
  Serious: Yes (Disabling)
  Sender: FDA-Public Use
  Company Number: CA-ASTRAZENECA-2011SE13113

PATIENT
  Age: 66 Year
  Sex: Female

DRUGS (10)
  1. FAMOTIDINE [Concomitant]
     Dates: end: 20110328
  2. DOMPERIDONE [Concomitant]
     Dates: start: 20110401
  3. NEXIUM [Suspect]
     Route: 048
     Dates: end: 20100921
  4. LIPITOR [Concomitant]
  5. NEXIUM [Suspect]
     Route: 048
     Dates: start: 20111205
  6. CIMETIDINE [Concomitant]
     Dates: end: 20101015
  7. DEXILANT [Concomitant]
     Dates: start: 20101101
  8. NEXIUM [Suspect]
     Route: 048
     Dates: start: 20110115
  9. NEXIUM [Suspect]
     Indication: GASTROOESOPHAGEAL REFLUX DISEASE
     Route: 048
     Dates: end: 20101101
  10. NEXIUM [Suspect]
     Route: 048
     Dates: end: 20110101

REACTIONS (6)
  - ABDOMINAL PAIN [None]
  - ABDOMINAL PAIN UPPER [None]
  - ABDOMINAL DISTENSION [None]
  - CONSTIPATION [None]
  - OROPHARYNGEAL PAIN [None]
  - SINUS CONGESTION [None]
